FAERS Safety Report 24748501 (Version 1)
Quarter: 2024Q4

REPORT INFORMATION
  Report Type: Spontaneous
  Country: JP (occurrence: JP)
  Receive Date: 20241218
  Receipt Date: 20241218
  Transmission Date: 20250114
  Serious: Yes (Hospitalization, Other)
  Sender: MYLAN
  Company Number: JP-MYE-2024M1094930AA

PATIENT
  Age: 54 Year
  Sex: Female

DRUGS (8)
  1. ZOLEDRONIC ACID [Suspect]
     Active Substance: ZOLEDRONIC ACID
     Indication: Breast cancer stage IV
     Dosage: 4 MILLIGRAM, BIMONTHLY
     Route: 065
  2. ZOLEDRONIC ACID [Suspect]
     Active Substance: ZOLEDRONIC ACID
     Indication: Metastases to bone
  3. TAMOXIFEN [Suspect]
     Active Substance: TAMOXIFEN
     Indication: Breast cancer stage IV
     Route: 065
  4. DENOSUMAB [Suspect]
     Active Substance: DENOSUMAB
     Indication: Breast cancer stage IV
     Dosage: UNK
     Route: 065
  5. DENOSUMAB [Suspect]
     Active Substance: DENOSUMAB
     Indication: Metastases to bone
  6. GOSERELIN [Suspect]
     Active Substance: GOSERELIN
     Indication: Breast cancer stage IV
     Route: 065
  7. GOSERELIN [Suspect]
     Active Substance: GOSERELIN
     Indication: Metastases to bone
  8. GOSERELIN [Suspect]
     Active Substance: GOSERELIN
     Indication: Metastases to liver

REACTIONS (2)
  - Atypical femur fracture [Recovered/Resolved]
  - Drug ineffective [Unknown]
